FAERS Safety Report 15752054 (Version 4)
Quarter: 2019Q1

REPORT INFORMATION
  Report Type: Report from Study
  Country: US (occurrence: US)
  Receive Date: 20181221
  Receipt Date: 20190301
  Transmission Date: 20190417
  Serious: Yes (Hospitalization)
  Sender: FDA-Public Use
  Company Number: US-ACTELION-A-NJ2018-177477

PATIENT
  Age: 23 Year
  Sex: Female
  Weight: 50.34 kg

DRUGS (6)
  1. ORENITRAM [Concomitant]
     Active Substance: TREPROSTINIL
  2. VELETRI [Suspect]
     Active Substance: EPOPROSTENOL
     Dosage: 33 NG/KG, PER MIN
     Route: 042
  3. VELETRI [Suspect]
     Active Substance: EPOPROSTENOL
     Indication: PULMONARY HYPERTENSION
     Dosage: 45 NG/KG, PER MIN
     Route: 042
  4. VELETRI [Suspect]
     Active Substance: EPOPROSTENOL
     Dosage: 18 NG/KG, PER MIN
     Route: 042
  5. ADEMPAS [Concomitant]
     Active Substance: RIOCIGUAT
  6. LETAIRIS [Concomitant]
     Active Substance: AMBRISENTAN

REACTIONS (19)
  - Candida infection [Unknown]
  - Lung transplant [Recovering/Resolving]
  - Blood potassium decreased [Unknown]
  - Constipation [Unknown]
  - Salivary hypersecretion [Unknown]
  - Limb discomfort [Recovering/Resolving]
  - Hypotension [Unknown]
  - Transplant evaluation [Unknown]
  - Heart rate increased [Unknown]
  - Pain in jaw [Unknown]
  - Flushing [Unknown]
  - Pain in extremity [Recovering/Resolving]
  - Fluid retention [Unknown]
  - Gastrointestinal disorder [Unknown]
  - Nausea [Unknown]
  - Swelling of eyelid [Unknown]
  - Weight decreased [Unknown]
  - Decreased appetite [Unknown]
  - Vomiting [Unknown]

NARRATIVE: CASE EVENT DATE: 20181212
